FAERS Safety Report 10157796 (Version 1)
Quarter: 2014Q2

REPORT INFORMATION
  Report Type: Report from Study
  Country: DE (occurrence: DE)
  Receive Date: 20140507
  Receipt Date: 20140507
  Transmission Date: 20141212
  Serious: No
  Sender: FDA-Public Use
  Company Number: PHHY2014DE054416

PATIENT
  Sex: Male

DRUGS (3)
  1. AMN107 [Suspect]
     Indication: CHRONIC MYELOID LEUKAEMIA
     Dosage: 600 MG, PER DAY
     Route: 048
     Dates: start: 20120329
  2. OMEP [Concomitant]
     Dosage: 40 MG, UNK
     Dates: start: 20130611
  3. MCP//METOCLOPRAMIDE [Concomitant]
     Dates: start: 20120329

REACTIONS (1)
  - Polyneuropathy [Not Recovered/Not Resolved]
